FAERS Safety Report 18529441 (Version 1)
Quarter: 2020Q4

REPORT INFORMATION
  Report Type: Report from Study
  Country: US (occurrence: US)
  Receive Date: 20201120
  Receipt Date: 20201120
  Transmission Date: 20210114
  Serious: Yes (Hospitalization)
  Sender: FDA-Public Use
  Company Number: US-EISAI MEDICAL RESEARCH-EC-2020-084022

PATIENT
  Age: 73 Year
  Sex: Female
  Weight: 48.5 kg

DRUGS (2)
  1. LENVIMA [Suspect]
     Active Substance: LENVATINIB
     Indication: ENDOMETRIAL CANCER STAGE IV
     Route: 048
     Dates: start: 20201002, end: 20201111
  2. KEYTRUDA [Concomitant]
     Active Substance: PEMBROLIZUMAB
     Indication: ENDOMETRIAL CANCER STAGE IV
     Dosage: UNKNOWN FREQUENCY
     Route: 041
     Dates: start: 20200917, end: 20201029

REACTIONS (4)
  - Oesophageal candidiasis [Unknown]
  - Odynophagia [Recovering/Resolving]
  - Cough [Unknown]
  - Dysphagia [Recovering/Resolving]

NARRATIVE: CASE EVENT DATE: 2020
